FAERS Safety Report 9144745 (Version 1)
Quarter: 2013Q1

REPORT INFORMATION
  Report Type: Spontaneous
  Country: US (occurrence: US)
  Receive Date: 20130306
  Receipt Date: 20130306
  Transmission Date: 20140127
  Serious: Yes (Hospitalization, Other)
  Sender: FDA-Public Use
  Company Number: US-B.I. PHARMACEUTICALS,INC./RIDGEFIELD-2013-BI-05631BP

PATIENT
  Age: 67 None
  Sex: Female
  Weight: 94 kg

DRUGS (3)
  1. SPIRIVA [Suspect]
     Indication: CHRONIC OBSTRUCTIVE PULMONARY DISEASE
     Dosage: 18 MCG
     Route: 055
     Dates: start: 2004
  2. ADVAIR [Concomitant]
     Indication: ASTHMA
     Route: 055
     Dates: start: 1992
  3. ALBUTEROL [Concomitant]
     Indication: ASTHMA
     Dosage: 360 MCG
     Route: 055
     Dates: start: 1992

REACTIONS (4)
  - Bronchitis [Recovered/Resolved]
  - Abdominal pain upper [Recovered/Resolved]
  - Ovarian cancer [Unknown]
  - Atypical pneumonia [Not Recovered/Not Resolved]
